FAERS Safety Report 4646516-4 (Version None)
Quarter: 2005Q2

REPORT INFORMATION
  Report Type: 
  Country: None (occurrence: None)
  Receive Date: 20050427
  Receipt Date: 20040720
  Transmission Date: 20051028
  Serious: No
  Sender: FDA-Public Use
  Company Number: US-GLAXOSMITHKLINE-A0519032A

PATIENT
  Age: 20 Month
  Sex: Male

DRUGS (2)
  1. FLOVENT [Suspect]
     Indication: ASTHMA
     Dosage: 2PUFF TWICE PER DAY
     Route: 055
     Dates: start: 20040716
  2. NO CONCURRENT MEDICATION [Concomitant]

REACTIONS (4)
  - ERYTHEMA [None]
  - EYE PRURITUS [None]
  - HYPERSENSITIVITY [None]
  - SWELLING FACE [None]
